FAERS Safety Report 12335227 (Version 1)
Quarter: 2016Q2

REPORT INFORMATION
  Report Type: Spontaneous
  Country: US (occurrence: US)
  Receive Date: 20160504
  Receipt Date: 20160504
  Transmission Date: 20160815
  Serious: No
  Sender: FDA-Public Use
  Company Number: US-ELI_LILLY_AND_COMPANY-US201604010596

PATIENT
  Sex: Female

DRUGS (9)
  1. AMLODIPINE [Concomitant]
     Active Substance: AMLODIPINE BESYLATE
     Indication: BLOOD PRESSURE MEASUREMENT
  2. HUMALOG [Suspect]
     Active Substance: INSULIN LISPRO
     Dosage: THREE TO FOUR TIMES A DAY USING A SLIDING SCALE AND AS NEEDED FOR
     Route: 065
     Dates: start: 20160424
  3. LANTUS [Concomitant]
     Active Substance: INSULIN GLARGINE
  4. HUMALOG [Suspect]
     Active Substance: INSULIN LISPRO
     Indication: TYPE 2 DIABETES MELLITUS
     Dosage: THREE TO FOUR TIMES A DAY USING A SLIDING SCALE AND AS NEEDED FOR
     Route: 065
     Dates: end: 20160424
  5. IRON COMPOUND [Concomitant]
  6. TORSEMIDE. [Concomitant]
     Active Substance: TORSEMIDE
  7. HUMALOG [Suspect]
     Active Substance: INSULIN LISPRO
     Indication: TYPE 2 DIABETES MELLITUS
     Dosage: THREE TO FOUR TIMES A DAY USING A SLIDING SCALE AND AS NEEDED FOR
     Route: 065
     Dates: end: 201604
  8. LOSARTAN. [Concomitant]
     Active Substance: LOSARTAN
     Indication: BLOOD PRESSURE MEASUREMENT
  9. SODIUM BICARBONATE COMPOUND [Suspect]
     Active Substance: SODIUM BICARBONATE
     Indication: PRODUCT USED FOR UNKNOWN INDICATION
     Dosage: UNK, UNKNOWN
     Route: 065

REACTIONS (7)
  - Rash generalised [Recovered/Resolved]
  - Rash papular [Recovered/Resolved]
  - Blood glucose increased [Recovered/Resolved]
  - Hypersensitivity [None]
  - Sleep disorder due to a general medical condition [Unknown]
  - Burning sensation [Unknown]
  - Blood glucose decreased [Recovered/Resolved]
